FAERS Safety Report 9400211 (Version 1)
Quarter: 2013Q3

REPORT INFORMATION
  Report Type: Spontaneous
  Country: US (occurrence: US)
  Receive Date: 20130715
  Receipt Date: 20130715
  Transmission Date: 20140515
  Serious: No
  Sender: FDA-Public Use
  Company Number: US-BAYER-2013-083758

PATIENT
  Age: 74 Year
  Sex: Male
  Weight: 99.77 kg

DRUGS (5)
  1. BAYER ADVANCED ASPIRIN EXTRA STRENGTH [Suspect]
     Indication: BACK PAIN
     Dosage: 1 DF, QD
     Route: 048
     Dates: start: 2012
  2. ALEVE CAPLET [Suspect]
  3. BAYER ASPIRIN REGIMEN REGULAR 325 MG STRENGTH [Suspect]
     Indication: ANTICOAGULANT THERAPY
     Dosage: 1 DF, QD
     Route: 048
     Dates: start: 2004, end: 2007
  4. PLAVIX [Concomitant]
  5. VASOTEC [Concomitant]

REACTIONS (5)
  - Abdominal discomfort [Recovered/Resolved]
  - Incorrect drug administration duration [None]
  - Increased tendency to bruise [None]
  - Off label use [None]
  - Drug ineffective [None]
